FAERS Safety Report 10203150 (Version 3)
Quarter: 2014Q2

REPORT INFORMATION
  Report Type: Spontaneous
  Country: US (occurrence: US)
  Receive Date: 20140529
  Receipt Date: 20140611
  Transmission Date: 20141212
  Serious: Yes (Hospitalization)
  Sender: FDA-Public Use
  Company Number: US-AMGEN-USASP2014035983

PATIENT
  Age: 64 Year
  Sex: Female
  Weight: 68.93 kg

DRUGS (12)
  1. XANAX [Concomitant]
  2. PROLIA [Suspect]
     Indication: OSTEOPOROSIS POSTMENOPAUSAL
     Dosage: 60 MG, Q6MO
     Route: 058
     Dates: start: 20130718
  3. ASA [Concomitant]
     Dosage: 81 MG, UNK
  4. CELEXA                             /00582602/ [Concomitant]
  5. LANTUS [Concomitant]
  6. CALCIUM CITRATE [Concomitant]
  7. LEVOXYL [Concomitant]
  8. LIPITOR [Concomitant]
  9. NEXIUM                             /01479302/ [Concomitant]
  10. NOVOLOG [Concomitant]
  11. VITAMIN D                          /00107901/ [Concomitant]
  12. VITAMIN E                          /00110501/ [Concomitant]

REACTIONS (1)
  - Swollen tongue [Not Recovered/Not Resolved]
